FAERS Safety Report 17527949 (Version 1)
Quarter: 2020Q1

REPORT INFORMATION
  Report Type: Spontaneous
  Country: ES (occurrence: ES)
  Receive Date: 20200311
  Receipt Date: 20200311
  Transmission Date: 20200409
  Serious: Yes (Hospitalization, Other)
  Sender: FDA-Public Use
  Company Number: ES-BAXTER-2020BAX004804

PATIENT
  Age: 2 Day
  Sex: Male

DRUGS (1)
  1. SUERO GLUCOSADO 10% BAXTER [Suspect]
     Active Substance: DEXTROSE
     Indication: PRODUCT USED FOR UNKNOWN INDICATION
     Dosage: 10% DEXTROSE SOLUTION, INTRAVENOUSLY, AT THE USUAL DOSE FOR NEWBORNS ACCORDING TO WEIGHT
     Route: 042
     Dates: start: 20200206

REACTIONS (2)
  - Instillation site burn [Unknown]
  - Paravenous drug administration [Unknown]

NARRATIVE: CASE EVENT DATE: 20200206
